FAERS Safety Report 8128141-6 (Version None)
Quarter: 2011Q4

REPORT INFORMATION
  Report Type: 
  Country: None (occurrence: None)
  Receive Date: 20111228
  Receipt Date: 20110725
  Transmission Date: 20120403
  Serious: Yes (Other)
  Sender: FDA-Public Use
  Company Number: WAES 1107USA03201

PATIENT
  Age: 50 Year
  Sex: Male

DRUGS (1)
  1. ZETIA [Suspect]
     Dosage: PO
     Route: 048
     Dates: end: 20110101

REACTIONS (1)
  - RHABDOMYOLYSIS [None]
